FAERS Safety Report 19063183 (Version 1)
Quarter: 2021Q1

REPORT INFORMATION
  Report Type: Report from Study
  Country: US (occurrence: US)
  Receive Date: 20210326
  Receipt Date: 20210326
  Transmission Date: 20210420
  Serious: Yes (Other)
  Sender: FDA-Public Use
  Company Number: US-JNJFOC-20210335220

PATIENT
  Sex: Male

DRUGS (5)
  1. SPRAVATO [Suspect]
     Active Substance: ESKETAMINE
     Dosage: 84 MG, TOTAL 6 DOSES
     Dates: start: 20201111, end: 20201216
  2. SPRAVATO [Suspect]
     Active Substance: ESKETAMINE
     Indication: DEPRESSION
     Dosage: 28 MG, TOTAL 1 DOSE
     Dates: start: 20201028, end: 20201028
  3. SPRAVATO [Suspect]
     Active Substance: ESKETAMINE
     Dates: start: 20201102, end: 20201109
  4. SPRAVATO [Suspect]
     Active Substance: ESKETAMINE
     Dosage: 56 MG, TOTAL 1 DOSE
     Dates: start: 20201030, end: 20201030
  5. SPRAVATO [Suspect]
     Active Substance: ESKETAMINE
     Dates: start: 20201223, end: 20201223

REACTIONS (1)
  - Neoplasm malignant [Unknown]
